FAERS Safety Report 25665407 (Version 1)
Quarter: 2025Q3

REPORT INFORMATION
  Report Type: Spontaneous
  Country: US (occurrence: US)
  Receive Date: 20250811
  Receipt Date: 20250811
  Transmission Date: 20251021
  Serious: Yes (Other)
  Sender: BAYER HEALTHCARE PHARMACEUTICALS INC.
  Company Number: US-BAYER-2025A103705

PATIENT
  Age: 38 Year
  Sex: Male

DRUGS (3)
  1. KOVALTRY [Suspect]
     Active Substance: ANTIHEMOPHILIC FACTOR, HUMAN RECOMBINANT
     Indication: Factor VIII deficiency
     Route: 042
     Dates: start: 202106
  2. KOVALTRY [Suspect]
     Active Substance: ANTIHEMOPHILIC FACTOR, HUMAN RECOMBINANT
     Indication: Factor VIII deficiency
     Route: 042
  3. KOVALTRY [Suspect]
     Active Substance: ANTIHEMOPHILIC FACTOR, HUMAN RECOMBINANT
     Indication: Factor VIII deficiency
     Route: 042

REACTIONS (6)
  - Haemarthrosis [None]
  - Haemorrhage [None]
  - Arthralgia [Recovered/Resolved]
  - Contusion [None]
  - Pain in extremity [None]
  - Limb discomfort [None]

NARRATIVE: CASE EVENT DATE: 20250710
